FAERS Safety Report 5313621-9 (Version None)
Quarter: 2007Q2

REPORT INFORMATION
  Report Type: 
  Country: None (occurrence: None)
  Receive Date: 20070501
  Receipt Date: 20070423
  Transmission Date: 20071010
  Serious: Yes (Hospitalization)
  Sender: FDA-Public Use
  Company Number: PHBS2007JP05547

PATIENT
  Age: 73 Year
  Sex: Male
  Weight: 56 kg

DRUGS (7)
  1. ESTRACYT [Suspect]
     Indication: PROSTATE CANCER
  2. ETOPOSIDE [Concomitant]
     Indication: PROSTATE CANCER
     Dosage: 50 MG/DAY
     Route: 048
     Dates: start: 20051221
  3. ZOMETA [Suspect]
     Indication: METASTASES TO BONE
     Dosage: 4 MG OVER 30 MINUTES
     Route: 042
     Dates: start: 20070216, end: 20070216
  4. ROCALTROL [Concomitant]
     Indication: HYPOCALCAEMIA
     Dosage: 0.5 MG/DAY
     Route: 048
     Dates: start: 20060617
  5. ASPARTATE CALCIUM [Concomitant]
     Indication: HYPOCALCAEMIA
     Dosage: 800 G/DAY
     Route: 048
     Dates: start: 20060830
  6. DECADRON [Concomitant]
     Indication: PROSTATE CANCER
     Dosage: 0.5 MG/DAY
     Route: 048
     Dates: start: 20060614
  7. ASPIRIN [Concomitant]
     Indication: THROMBOSIS PROPHYLAXIS
     Dosage: 100 MG/DAY
     Route: 048
     Dates: start: 20061025

REACTIONS (7)
  - ANOREXIA [None]
  - ARTHRALGIA [None]
  - ASTHENIA [None]
  - BLOOD ALKALINE PHOSPHATASE INCREASED [None]
  - BLOOD LACTATE DEHYDROGENASE INCREASED [None]
  - C-REACTIVE PROTEIN INCREASED [None]
  - CARDIAC FAILURE CONGESTIVE [None]
